FAERS Safety Report 6684573-4 (Version None)
Quarter: 2010Q2

REPORT INFORMATION
  Report Type: 
  Country: None (occurrence: None)
  Receive Date: 20100416
  Receipt Date: 20100406
  Transmission Date: 20101027
  Serious: Yes (Other)
  Sender: FDA-Public Use
  Company Number: US-ROCHE-696636

PATIENT
  Weight: 1.5 kg

DRUGS (2)
  1. OSELTAMIVIR PHOSPHATE [Suspect]
     Route: 064
     Dates: start: 20090501
  2. OSELTAMIVIR PHOSPHATE [Suspect]
     Route: 064

REACTIONS (5)
  - APGAR SCORE LOW [None]
  - LIVE BIRTH [None]
  - NEONATAL RESPIRATORY ARREST [None]
  - RESPIRATORY ARREST [None]
  - SMALL FOR DATES BABY [None]
